FAERS Safety Report 4717650-5 (Version None)
Quarter: 2005Q3

REPORT INFORMATION
  Report Type: 
  Country: None (occurrence: None)
  Receive Date: 20050713
  Receipt Date: 20050328
  Transmission Date: 20060218
  Serious: Yes (Death)
  Sender: FDA-Public Use
  Company Number: 400040

PATIENT
  Age: 44 Year
  Sex: Female

DRUGS (1)
  1. FUZEON [Suspect]
     Dosage: OTHER
     Route: 050

REACTIONS (1)
  - DEATH [None]
